FAERS Safety Report 24721657 (Version 1)
Quarter: 2024Q4

REPORT INFORMATION
  Report Type: Spontaneous
  Country: JP (occurrence: JP)
  Receive Date: 20241211
  Receipt Date: 20241211
  Transmission Date: 20250115
  Serious: Yes (Other)
  Sender: Karo Pharma
  Company Number: JP-Karo Pharma-2166899

PATIENT
  Age: 8 Year
  Sex: Female

DRUGS (3)
  1. LAMISIL [Suspect]
     Active Substance: TERBINAFINE HYDROCHLORIDE
     Indication: Body tinea
  2. LULICONAZOLE [Suspect]
     Active Substance: LULICONAZOLE
  3. ITRACONAZOLE [Suspect]
     Active Substance: ITRACONAZOLE

REACTIONS (2)
  - Skin irritation [Recovered/Resolved]
  - Hepatic function abnormal [Recovered/Resolved]
